FAERS Safety Report 5710705-8 (Version None)
Quarter: 2008Q2

REPORT INFORMATION
  Report Type: 
  Country: None (occurrence: None)
  Receive Date: 20080421
  Receipt Date: 20080409
  Transmission Date: 20081010
  Serious: Yes (Hospitalization)
  Sender: FDA-Public Use
  Company Number: TW-RANBAXY-2008RR-14367

PATIENT

DRUGS (2)
  1. LISINOPRIL [Suspect]
     Indication: HYPERTENSION
  2. TIZANIDINE HCL [Suspect]

REACTIONS (2)
  - DRUG INTERACTION [None]
  - HYPOTENSION [None]
